FAERS Safety Report 9977375 (Version 1)
Quarter: 2014Q1

REPORT INFORMATION
  Report Type: Spontaneous
  Country: US (occurrence: US)
  Receive Date: 20140306
  Receipt Date: 20140306
  Transmission Date: 20141002
  Serious: No
  Sender: FDA-Public Use
  Company Number: US-ABBVIE-13P-163-1167432-00

PATIENT
  Age: 39 Year
  Sex: Female
  Weight: 81.72 kg

DRUGS (3)
  1. HUMIRA [Suspect]
     Indication: CROHN^S DISEASE
     Dates: start: 20131010, end: 20131010
  2. HUMIRA [Suspect]
     Dates: start: 20130924, end: 20130924
  3. HUMIRA [Suspect]
     Dates: start: 20131107

REACTIONS (1)
  - Nasopharyngitis [Not Recovered/Not Resolved]
